FAERS Safety Report 4424349-1 (Version None)
Quarter: 2004Q3

REPORT INFORMATION
  Report Type: 
  Country: None (occurrence: None)
  Receive Date: 20040715
  Receipt Date: 20040524
  Transmission Date: 20050211
  Serious: Yes (Hospitalization)
  Sender: FDA-Public Use
  Company Number: 2004207693US

PATIENT
  Age: 91 Year
  Sex: Male
  Weight: 73.5 kg

DRUGS (8)
  1. CELEBREX [Suspect]
     Indication: OSTEOARTHRITIS
     Dosage: 200 MG, BID, ORAL
     Route: 048
     Dates: start: 20010901, end: 20040315
  2. EC BABY ASA () [Suspect]
     Dates: end: 20040315
  3. LASIX [Concomitant]
  4. ALLOPURINOL [Concomitant]
  5. METOPROLOL [Concomitant]
  6. ISOSORBIDE (ISOSORBIDE) [Concomitant]
  7. LEVOXYL [Concomitant]
  8. PROTONIX [Concomitant]

REACTIONS (1)
  - GASTROINTESTINAL HAEMORRHAGE [None]
